FAERS Safety Report 9352061 (Version 1)
Quarter: 2013Q2

REPORT INFORMATION
  Report Type: Report from Study
  Country: DE (occurrence: DE)
  Receive Date: 20130617
  Receipt Date: 20130617
  Transmission Date: 20140414
  Serious: Yes (Hospitalization)
  Sender: FDA-Public Use
  Company Number: DE-009507513-1306DEU005573

PATIENT
  Age: 54 Year
  Sex: Female

DRUGS (3)
  1. BOCEPREVIR [Suspect]
     Indication: CHRONIC HEPATITIS C
     Dosage: UNK
     Dates: end: 20130511
  2. INTERFERON (UNSPECIFIED) [Suspect]
     Indication: CHRONIC HEPATITIS C
  3. RIBAVIRIN [Suspect]
     Indication: CHRONIC HEPATITIS C

REACTIONS (1)
  - Diarrhoea [Recovered/Resolved]
